FAERS Safety Report 7456804-4 (Version None)
Quarter: 2011Q2

REPORT INFORMATION
  Report Type: 
  Country: None (occurrence: None)
  Receive Date: 20110504
  Receipt Date: 20110426
  Transmission Date: 20111010
  Serious: Yes (Hospitalization)
  Sender: FDA-Public Use
  Company Number: US-BIOGENIDEC-2011BI008875

PATIENT
  Age: 53 Year
  Sex: Female

DRUGS (3)
  1. AVONEX [Suspect]
     Indication: MULTIPLE SCLEROSIS
     Route: 030
     Dates: start: 20090501
  2. AVONEX [Suspect]
     Route: 030
     Dates: start: 20040901
  3. LOVENOX [Concomitant]
     Indication: PROPHYLAXIS

REACTIONS (2)
  - FALL [None]
  - FEMUR FRACTURE [None]
